FAERS Safety Report 10184161 (Version 2)
Quarter: 2014Q2

REPORT INFORMATION
  Report Type: Spontaneous
  Country: BR (occurrence: BR)
  Receive Date: 20140520
  Receipt Date: 20140604
  Transmission Date: 20141212
  Serious: Yes (Other)
  Sender: FDA-Public Use
  Company Number: BR-ELI_LILLY_AND_COMPANY-BR201405002237

PATIENT
  Sex: Male
  Weight: 48 kg

DRUGS (9)
  1. HUMULIN N [Suspect]
     Indication: TYPE 1 DIABETES MELLITUS
     Dosage: 28 IU, EACH MORNING
     Route: 058
     Dates: start: 2007
  2. HUMULIN N [Suspect]
     Dosage: 14 IU, QD
     Route: 058
     Dates: start: 2007
  3. HUMULIN N [Suspect]
     Dosage: 18 IU, EACH EVENING
     Route: 058
     Dates: start: 2007
  4. HUMULIN R [Suspect]
     Indication: TYPE 1 DIABETES MELLITUS
     Dosage: 1 IU, OTHER
     Route: 058
     Dates: start: 2007
  5. HUMULIN R [Suspect]
     Dosage: 2 IU, OTHER
     Route: 058
     Dates: start: 2007
  6. HUMULIN R [Suspect]
     Dosage: 3 IU, OTHER
     Route: 058
     Dates: start: 2007
  7. HUMULIN R [Suspect]
     Dosage: 4 IU, OTHER
     Route: 058
     Dates: start: 2007
  8. HUMULIN R [Suspect]
     Dosage: 5 IU, OTHER
     Route: 058
     Dates: start: 2007
  9. HUMULIN R [Suspect]
     Dosage: 6 IU, OTHER
     Route: 058
     Dates: start: 2007

REACTIONS (4)
  - Blood glucose increased [Recovered/Resolved]
  - Injection site bruising [Recovering/Resolving]
  - Injection site pain [Recovering/Resolving]
  - Injection site mass [Recovering/Resolving]
